FAERS Safety Report 14340766 (Version 9)
Quarter: 2022Q3

REPORT INFORMATION
  Report Type: Spontaneous
  Country: US (occurrence: None)
  Receive Date: 20180101
  Receipt Date: 20220927
  Transmission Date: 20221027
  Serious: Yes (Other)
  Sender: FDA-Public Use
  Company Number: 2017SF33208

PATIENT
  Age: 19716 Day
  Sex: Female
  Weight: 90.7 kg

DRUGS (61)
  1. PRILOSEC OTC [Suspect]
     Active Substance: OMEPRAZOLE MAGNESIUM
     Indication: Gastrooesophageal reflux disease
     Dosage: GENERIC
     Route: 065
     Dates: start: 2009
  2. PRILOSEC OTC [Suspect]
     Active Substance: OMEPRAZOLE MAGNESIUM
     Indication: Gastrooesophageal reflux disease
     Route: 048
     Dates: start: 2015
  3. PRILOSEC OTC [Suspect]
     Active Substance: OMEPRAZOLE MAGNESIUM
     Indication: Gastrooesophageal reflux disease
     Route: 048
     Dates: start: 20151230
  4. PRILOSEC OTC [Suspect]
     Active Substance: OMEPRAZOLE MAGNESIUM
     Indication: Gastrooesophageal reflux disease
     Route: 048
  5. NEXIUM 24HR [Suspect]
     Active Substance: ESOMEPRAZOLE MAGNESIUM
     Indication: Gastrooesophageal reflux disease
     Route: 048
     Dates: start: 2005
  6. PRILOSEC [Suspect]
     Active Substance: OMEPRAZOLE MAGNESIUM
     Indication: Gastrooesophageal reflux disease
     Dosage: GENERIC
     Route: 065
     Dates: start: 2009
  7. PRILOSEC [Suspect]
     Active Substance: OMEPRAZOLE MAGNESIUM
     Indication: Gastrooesophageal reflux disease
     Route: 048
     Dates: start: 2009
  8. PRILOSEC [Suspect]
     Active Substance: OMEPRAZOLE MAGNESIUM
     Indication: Gastrooesophageal reflux disease
     Dosage: GENERIC
     Route: 065
     Dates: start: 2009, end: 2022
  9. LEVEMIR [Concomitant]
     Active Substance: INSULIN DETEMIR
     Indication: Type 2 diabetes mellitus
     Dates: start: 2017
  10. CLOTRIMAZOLE [Concomitant]
     Active Substance: CLOTRIMAZOLE
  11. AMLODIPINE BESYLATE [Concomitant]
     Active Substance: AMLODIPINE BESYLATE
     Indication: Hypertension
     Route: 065
     Dates: start: 2017
  12. AMLODIPINE BESYLATE [Concomitant]
     Active Substance: AMLODIPINE BESYLATE
     Indication: Hypertension
  13. BENAZEPRIL [Concomitant]
     Active Substance: BENAZEPRIL HYDROCHLORIDE
     Indication: Hypertension
     Route: 065
     Dates: start: 2010
  14. BENAZEPRIL [Concomitant]
     Active Substance: BENAZEPRIL HYDROCHLORIDE
     Indication: Hypertension
  15. ISOSORBIDE MONONITRATE/METOPROLOL SUCCINATE [Concomitant]
  16. METFORMIN HYDROCHLORIDE [Concomitant]
     Active Substance: METFORMIN HYDROCHLORIDE
  17. GEMFIBROZIL [Concomitant]
     Active Substance: GEMFIBROZIL
     Indication: Blood cholesterol
     Route: 065
     Dates: start: 2009
  18. GEMFIBROZIL [Concomitant]
     Active Substance: GEMFIBROZIL
     Indication: Blood cholesterol
  19. VITAMIN D2 [Concomitant]
     Active Substance: ERGOCALCIFEROL
     Indication: Vitamin D deficiency
     Route: 065
     Dates: start: 2016
  20. VITAMIN D2 [Concomitant]
     Active Substance: ERGOCALCIFEROL
     Indication: Vitamin D deficiency
  21. LYRICA [Concomitant]
     Active Substance: PREGABALIN
     Indication: Fibromyalgia
     Dates: start: 2012
  22. LYRICA [Concomitant]
     Active Substance: PREGABALIN
     Indication: Fibromyalgia
  23. AZITHROMYCIN [Concomitant]
     Active Substance: AZITHROMYCIN
  24. HYDROCHLOROTHIAZIDE [Concomitant]
     Active Substance: HYDROCHLOROTHIAZIDE
     Route: 065
     Dates: start: 2008
  25. HYDROCHLOROTHIAZIDE [Concomitant]
     Active Substance: HYDROCHLOROTHIAZIDE
  26. INSULIN GLARGINE PEN U 100 INJ [Concomitant]
  27. ZOLPIDEM [Concomitant]
     Active Substance: ZOLPIDEM TARTRATE
  28. MOMETASONE [Concomitant]
     Active Substance: MOMETASONE
  29. TRAMADOL [Concomitant]
     Active Substance: TRAMADOL
  30. FERROUS SULFATE [Concomitant]
     Active Substance: FERROUS SULFATE
  31. ATORVASTATIN [Concomitant]
     Active Substance: ATORVASTATIN
     Indication: Blood cholesterol increased
     Route: 065
     Dates: start: 2017
  32. ATORVASTATIN [Concomitant]
     Active Substance: ATORVASTATIN
     Indication: Blood cholesterol increased
  33. FLONASE [Concomitant]
     Active Substance: FLUTICASONE PROPIONATE
     Indication: Multiple allergies
     Route: 065
  34. PROAIR HFA [Concomitant]
     Active Substance: ALBUTEROL SULFATE
     Indication: Asthma
     Route: 065
     Dates: start: 2002
  35. NAPROSYN [Concomitant]
     Active Substance: NAPROXEN
     Indication: Fibromyalgia
     Route: 065
     Dates: start: 2007, end: 2016
  36. MAGNESIUM [Concomitant]
     Active Substance: MAGNESIUM
     Indication: Muscle spasms
     Route: 065
     Dates: start: 2015
  37. FAMOTIDINE/ PEPCID AC [Concomitant]
     Route: 065
     Dates: start: 2007
  38. TAGAMET HB [Concomitant]
     Active Substance: CIMETIDINE
     Route: 065
     Dates: start: 2008
  39. ZANTAC [Concomitant]
     Active Substance: RANITIDINE HYDROCHLORIDE
     Route: 065
     Dates: start: 2007
  40. TRIAMCINOLONE ACETONIDE [Concomitant]
     Active Substance: TRIAMCINOLONE ACETONIDE
  41. CLOBETASOL [Concomitant]
     Active Substance: CLOBETASOL
  42. AMITRIPTYLINE [Concomitant]
     Active Substance: AMITRIPTYLINE
  43. LAMISIL [Concomitant]
     Active Substance: TERBINAFINE HYDROCHLORIDE
  44. PROMETHAZINE [Concomitant]
     Active Substance: PROMETHAZINE HYDROCHLORIDE
  45. DULOXETINE [Concomitant]
     Active Substance: DULOXETINE
  46. FENOFIBRATE [Concomitant]
     Active Substance: FENOFIBRATE
  47. BENAZEPRIL [Concomitant]
     Active Substance: BENAZEPRIL HYDROCHLORIDE
  48. CLOBETASOL [Concomitant]
     Active Substance: CLOBETASOL
  49. TRIAMCINOLONE [Concomitant]
     Active Substance: TRIAMCINOLONE
  50. VITAMIN D2 [Concomitant]
     Active Substance: ERGOCALCIFEROL
  51. BENAZEPRIL HYDROCHLORIDE [Concomitant]
     Active Substance: BENAZEPRIL HYDROCHLORIDE
  52. OMEPRAZOLE [Concomitant]
     Active Substance: OMEPRAZOLE
  53. LANTUS SOLOSTAR [Concomitant]
     Active Substance: INSULIN GLARGINE
  54. NAPROXEN [Concomitant]
     Active Substance: NAPROXEN
  55. GABAPENTIN [Concomitant]
     Active Substance: GABAPENTIN
  56. FLONASE ALLERGY RELIEF [Concomitant]
     Active Substance: FLUTICASONE PROPIONATE
  57. ZOLPIDEM TARTRATE [Concomitant]
     Active Substance: ZOLPIDEM TARTRATE
  58. UNSPECIFIED INGREDIENT [Concomitant]
     Active Substance: UNSPECIFIED INGREDIENT
  59. BEZONATATE [Concomitant]
  60. MONTELUKAST [Concomitant]
     Active Substance: MONTELUKAST SODIUM
  61. LORATADINE [Concomitant]
     Active Substance: LORATADINE

REACTIONS (6)
  - Chronic kidney disease [Not Recovered/Not Resolved]
  - Nephrogenic anaemia [Unknown]
  - End stage renal disease [Unknown]
  - Hyperparathyroidism secondary [Unknown]
  - Renal failure [Unknown]
  - Chronic kidney disease-mineral and bone disorder [Unknown]

NARRATIVE: CASE EVENT DATE: 20160120
